FAERS Safety Report 4482476-7 (Version None)
Quarter: 2004Q3

REPORT INFORMATION
  Report Type: 
  Country: None (occurrence: None)
  Receive Date: 20040921
  Receipt Date: 20040512
  Transmission Date: 20050211
  Serious: Yes (Hospitalization)
  Sender: FDA-Public Use
  Company Number: 163-20785-04050355

PATIENT
  Age: 61 Year
  Sex: Female
  Weight: 67.8 kg

DRUGS (7)
  1. THALOMID [Suspect]
     Indication: MULTIPLE MYELOMA
     Dosage: 200 MG, DAILY, ORAL
     Route: 048
     Dates: start: 20040403, end: 20040406
  2. BORTEZOMIB (BORTEZOMIB) [Suspect]
     Indication: MULTIPLE MYELOMA
     Dosage: 1.7 MG, INTRAVENOUS
     Route: 042
     Dates: start: 20040324
  3. DEXAMETHASONE [Suspect]
     Indication: MULTIPLE MYELOMA
     Dosage: 40 MG, DAILY, ORAL
     Route: 048
     Dates: start: 20040403, end: 20040406
  4. CISPLATIN [Suspect]
     Indication: MULTIPLE MYELOMA
     Dosage: 20 MG, DAILY, INTRAVENOUS
     Route: 042
     Dates: start: 20040403, end: 20040406
  5. ADRIAMYCIN PFS [Suspect]
     Indication: MULTIPLE MYELOMA
     Dosage: 20 MG, DAILY, INTRAVENOUS
     Route: 042
     Dates: start: 20040403, end: 20040406
  6. CYCLOPHOSPHAMIDE [Suspect]
     Indication: MULTIPLE MYELOMA
     Dosage: 800 MG, DAILY, INTRAVENOUS
     Route: 042
     Dates: start: 20040403, end: 20040406
  7. ETOPOSIDE [Suspect]
     Indication: MULTIPLE MYELOMA
     Dosage: 80 MG, DAILY, INTRAVENOUS
     Route: 042
     Dates: start: 20040403, end: 20040406

REACTIONS (5)
  - COUGH [None]
  - PNEUMONIA [None]
  - PYREXIA [None]
  - SINUS PAIN [None]
  - SINUSITIS [None]
